FAERS Safety Report 6321139-X (Version None)
Quarter: 2009Q3

REPORT INFORMATION
  Report Type: 
  Country: None (occurrence: None)
  Receive Date: 20090822
  Receipt Date: 20090306
  Transmission Date: 20100115
  Serious: No
  Sender: FDA-Public Use
  Company Number: US-ABBOTT-08P-163-0479248-00

PATIENT
  Sex: Female
  Weight: 102.15 kg

DRUGS (7)
  1. NIASPAN [Suspect]
     Indication: BLOOD TRIGLYCERIDES INCREASED
     Dosage: 500MG DAILY AT BEDTIME
     Route: 048
     Dates: start: 20080801, end: 20080801
  2. NIASPAN [Suspect]
     Dosage: 500 MG - CUT IN HALF
     Route: 048
     Dates: start: 20080801, end: 20080901
  3. NIASPAN [Suspect]
     Dosage: 500MG DAILY IN AM
     Route: 048
     Dates: start: 20080901
  4. METOPROLOL [Suspect]
     Indication: HYPERTENSION
     Route: 048
  5. PAXIL [Suspect]
     Indication: DRUG USE FOR UNKNOWN INDICATION
     Route: 048
  6. CLARITIN [Suspect]
     Indication: SEASONAL ALLERGY
     Route: 048
  7. PROTONIX [Concomitant]
     Indication: ULCER
     Route: 048

REACTIONS (5)
  - FLUSHING [None]
  - MENORRHAGIA [None]
  - PRURITUS [None]
  - RASH [None]
  - THROMBOSIS [None]
